FAERS Safety Report 24081240 (Version 1)
Quarter: 2024Q3

REPORT INFORMATION
  Report Type: Spontaneous
  Country: JP (occurrence: None)
  Receive Date: 20240711
  Receipt Date: 20240711
  Transmission Date: 20241016
  Serious: Yes (Life-Threatening, Hospitalization, Other)
  Sender: ASTRAZENECA
  Company Number: 2024A146057

PATIENT
  Age: 53 Year
  Sex: Male
  Weight: 54 kg

DRUGS (1)
  1. IMFINZI [Suspect]
     Active Substance: DURVALUMAB
     Indication: Non-small cell lung cancer
     Route: 041
     Dates: start: 20240312, end: 20240522

REACTIONS (4)
  - Cerebral haemorrhage [Unknown]
  - Immune-mediated myocarditis [Unknown]
  - Brain natriuretic peptide increased [Unknown]
  - Troponin increased [Unknown]

NARRATIVE: CASE EVENT DATE: 20240619
